FAERS Safety Report 15745208 (Version 1)
Quarter: 2018Q4

REPORT INFORMATION
  Report Type: Report from Study
  Country: None (occurrence: US)
  Receive Date: 20181220
  Receipt Date: 20181220
  Transmission Date: 20190205
  Serious: Yes (Other)
  Sender: FDA-Public Use
  Company Number: US-ABBVIE-18S-163-2594291-00

PATIENT
  Age: 75 Year
  Sex: Male

DRUGS (1)
  1. CREON [Suspect]
     Active Substance: PANCRELIPASE AMYLASE\PANCRELIPASE LIPASE\PANCRELIPASE PROTEASE
     Indication: PRODUCT USED FOR UNKNOWN INDICATION
     Route: 048

REACTIONS (23)
  - Dysphagia [Unknown]
  - Nocturia [Unknown]
  - Cardiac disorder [Unknown]
  - Hernia repair [Unknown]
  - Vitamin D deficiency [Unknown]
  - Single functional kidney [Unknown]
  - Renal disorder [Unknown]
  - Chronic left ventricular failure [Unknown]
  - Atrial fibrillation [Unknown]
  - Diarrhoea [Unknown]
  - Pancreatitis chronic [Unknown]
  - Gastric bypass [Unknown]
  - Ear pain [Unknown]
  - Arteriosclerosis coronary artery [Unknown]
  - Malabsorption [Unknown]
  - Headache [Unknown]
  - Gastrointestinal haemorrhage [Unknown]
  - Gout [Unknown]
  - Diarrhoea [Unknown]
  - Benign prostatic hyperplasia [Unknown]
  - Coronary artery disease [Unknown]
  - Chronic kidney disease [Unknown]
  - Blood parathyroid hormone increased [Unknown]

NARRATIVE: CASE EVENT DATE: 1999
